FAERS Safety Report 6010365-5 (Version None)
Quarter: 2008Q4

REPORT INFORMATION
  Report Type: 
  Country: None (occurrence: None)
  Receive Date: 20081218
  Receipt Date: 20080818
  Transmission Date: 20090506
  Serious: Yes (Other)
  Sender: FDA-Public Use
  Company Number: US-BRISTOL-MYERS SQUIBB COMPANY-14444111

PATIENT
  Sex: Male

DRUGS (3)
  1. KENALOG [Suspect]
     Dosage: 4 CC OF A MIXTURE OF 80 MG OF TRIAMCINOLONE ACETONIDE,
     Route: 037
  2. LIDOCAINE [Suspect]
     Dosage: LIDOCAINE 1.5%
     Route: 039
  3. SODIUM CHLORIDE [Suspect]
     Dosage: 1 CC OF NORMAL SALINE
     Route: 039

REACTIONS (3)
  - DRUG ADMINISTRATION ERROR [None]
  - PARALYSIS FLACCID [None]
  - SPINAL CORD INJURY [None]
